FAERS Safety Report 15833333 (Version 1)
Quarter: 2018Q4

REPORT INFORMATION
  Report Type: Spontaneous
  Country: US (occurrence: US)
  Receive Date: 20181221
  Receipt Date: 20181221
  Transmission Date: 20190205
  Serious: No
  Sender: FDA-Public Use
  Company Number: None

PATIENT
  Age: 66 Year
  Sex: Male

DRUGS (2)
  1. TAFINLAR [Concomitant]
     Active Substance: DABRAFENIB MESYLATE
  2. MEKINIST [Suspect]
     Active Substance: TRAMETINIB DIMETHYL SULFOXIDE
     Route: 048
     Dates: start: 20171030

REACTIONS (4)
  - Muscular weakness [None]
  - Rash [None]
  - Peripheral swelling [None]
  - Decreased appetite [None]

NARRATIVE: CASE EVENT DATE: 20181213
